FAERS Safety Report 7642501-9 (Version None)
Quarter: 2011Q3

REPORT INFORMATION
  Report Type: 
  Country: None (occurrence: None)
  Receive Date: 20110728
  Receipt Date: 20110726
  Transmission Date: 20111222
  Serious: Yes (Death, Congenital Anomaly)
  Sender: FDA-Public Use
  Company Number: FR-PFIZER INC-2011169275

PATIENT
  Sex: Male

DRUGS (2)
  1. EFFEXOR XR [Suspect]
     Indication: MENTAL DISORDER
     Dosage: 75 MG, 1X/DAY
     Route: 064
     Dates: start: 20090307, end: 20090401
  2. DEPAKOTE [Suspect]
     Indication: MENTAL DISORDER
     Dosage: 750 MG, 1X/DAY
     Route: 064
     Dates: start: 20090307, end: 20090401

REACTIONS (5)
  - MATERNAL DRUGS AFFECTING FOETUS [None]
  - MATERNAL EXPOSURE DURING PREGNANCY [None]
  - FOETAL MALFORMATION [None]
  - MICROPHTHALMOS [None]
  - HYPOSPADIAS [None]
